FAERS Safety Report 12329524 (Version 2)
Quarter: 2016Q2

REPORT INFORMATION
  Report Type: Spontaneous
  Country: CN (occurrence: CN)
  Receive Date: 20160503
  Receipt Date: 20160616
  Transmission Date: 20160815
  Serious: Yes (Other)
  Sender: FDA-Public Use
  Company Number: CN-PFIZER INC-2016239566

PATIENT
  Age: 46 Year
  Sex: Male
  Weight: 66 kg

DRUGS (5)
  1. RITUXAN [Suspect]
     Active Substance: RITUXIMAB
     Indication: NON-HODGKIN^S LYMPHOMA
     Dosage: 600 MG, ONCE DAILY, EVERY 21 DAYS
     Route: 041
     Dates: start: 20150604, end: 20150604
  2. CYCLOPHOSPHAMIDE. [Suspect]
     Active Substance: CYCLOPHOSPHAMIDE
     Indication: NON-HODGKIN^S LYMPHOMA
     Dosage: 1.3 G, ONCE A DAY, EVERY 21 DAYS
     Route: 041
     Dates: start: 20150604, end: 20150604
  3. PHARMORUBICIN [Suspect]
     Active Substance: EPIRUBICIN
     Indication: NON-HODGKIN^S LYMPHOMA
     Dosage: 130 MG, ONCE DAILY, EVERY 21 DAYS
     Route: 041
     Dates: start: 20150604, end: 20150604
  4. VINDESINE SULFATE [Suspect]
     Active Substance: VINDESINE SULFATE
     Indication: NON-HODGKIN^S LYMPHOMA
     Dosage: 4 MG, ONCE DAILY, EVERY 21 DAYS
     Route: 041
     Dates: start: 20150604, end: 20150604
  5. PREDNISOLONE. [Suspect]
     Active Substance: PREDNISOLONE
     Indication: NON-HODGKIN^S LYMPHOMA
     Dosage: 30 MG, THREE TIMES A DAY ON DAYS 1-5
     Dates: start: 20150604

REACTIONS (1)
  - Bone marrow failure [Recovering/Resolving]

NARRATIVE: CASE EVENT DATE: 20150612
